FAERS Safety Report 16313510 (Version 1)
Quarter: 2019Q2

REPORT INFORMATION
  Report Type: Spontaneous
  Country: US (occurrence: US)
  Receive Date: 20190409
  Receipt Date: 20190409
  Transmission Date: 20190711
  Serious: No
  Sender: FDA-Public Use
  Company Number: None

PATIENT
  Age: 89 Year
  Sex: Male

DRUGS (4)
  1. GABAPENTIN. [Concomitant]
     Active Substance: GABAPENTIN
  2. RANITIDINE. [Concomitant]
     Active Substance: RANITIDINE
  3. ASPIRIN. [Concomitant]
     Active Substance: ASPIRIN
  4. CAPECITABINE TAB 500 MG [Suspect]
     Active Substance: CAPECITABINE
     Dates: start: 20190305, end: 20190409

REACTIONS (1)
  - Cancer in remission [None]

NARRATIVE: CASE EVENT DATE: 20190409
